FAERS Safety Report 4591275-7 (Version None)
Quarter: 2005Q1

REPORT INFORMATION
  Report Type: 
  Country: None (occurrence: None)
  Receive Date: 20050225
  Receipt Date: 20050221
  Transmission Date: 20050727
  Serious: Yes (Death, Hospitalization, Other)
  Sender: FDA-Public Use
  Company Number: PHBS2005BR02544

PATIENT
  Age: 72 Year
  Sex: Male
  Weight: 49 kg

DRUGS (7)
  1. GLEEVEC [Suspect]
     Dosage: 400 MG, QD
     Route: 048
     Dates: start: 20040831, end: 20050118
  2. PAROXETINE HYDROCHLORIDE [Concomitant]
     Dates: start: 20050102, end: 20050201
  3. LORAX [Concomitant]
     Dates: start: 20050102, end: 20050201
  4. DIPYRONE [Concomitant]
     Dates: start: 20050102
  5. TYLEX [Concomitant]
     Dates: start: 20050102, end: 20050201
  6. MORPHINE SULFATE [Concomitant]
  7. AREDIA [Concomitant]
     Route: 042

REACTIONS (14)
  - APHASIA [None]
  - ASTHENIA [None]
  - ATROPHY [None]
  - BONE DISORDER [None]
  - CARDIOPULMONARY FAILURE [None]
  - CONDITION AGGRAVATED [None]
  - DEPRESSED LEVEL OF CONSCIOUSNESS [None]
  - DYSKINESIA [None]
  - DYSPHAGIA [None]
  - FEELING ABNORMAL [None]
  - MOVEMENT DISORDER [None]
  - NAUSEA [None]
  - PAIN [None]
  - SOMNOLENCE [None]
